FAERS Safety Report 18732836 (Version 2)
Quarter: 2021Q1

REPORT INFORMATION
  Report Type: Report from Study
  Country: PL (occurrence: PL)
  Receive Date: 20210112
  Receipt Date: 20210203
  Transmission Date: 20210419
  Serious: Yes (Life-Threatening)
  Sender: FDA-Public Use
  Company Number: PL-CELGENEUS-POL-20210102090

PATIENT
  Age: 61 Year
  Sex: Male
  Weight: 128 kg

DRUGS (10)
  1. ACARD [ACETYLSALICYLIC ACID] [Concomitant]
     Active Substance: ASPIRIN
     Indication: THROMBOSIS PROPHYLAXIS
     Route: 048
     Dates: start: 20201207
  2. MILURIT [Concomitant]
     Active Substance: ALLOPURINOL
     Indication: HYPERTENSION
     Route: 048
     Dates: start: 20201207
  3. LENALIDOMIDE [Suspect]
     Active Substance: LENALIDOMIDE
     Indication: PLASMA CELL MYELOMA
     Dosage: 25 MILLIGRAM
     Route: 048
     Dates: start: 20201207, end: 20201221
  4. DEXAMETHASONE. [Suspect]
     Active Substance: DEXAMETHASONE
     Indication: PLASMA CELL MYELOMA
     Dosage: 20 MILLIGRAM
     Route: 048
     Dates: start: 20201207, end: 20201219
  5. HEVIRAN [Concomitant]
     Active Substance: ACYCLOVIR
     Indication: PROPHYLAXIS
     Route: 048
     Dates: start: 20201207
  6. MILURIT [Concomitant]
     Active Substance: ALLOPURINOL
     Indication: CARDIAC FAILURE
  7. MILURIT [Concomitant]
     Active Substance: ALLOPURINOL
     Indication: BUNDLE BRANCH BLOCK RIGHT
  8. BORTEZOMIB. [Suspect]
     Active Substance: BORTEZOMIB
     Indication: PLASMA CELL MYELOMA
     Route: 041
     Dates: start: 20201207, end: 20201217
  9. MILURIT [Concomitant]
     Active Substance: ALLOPURINOL
     Indication: ATRIAL FIBRILLATION
  10. MILURIT [Concomitant]
     Active Substance: ALLOPURINOL
     Indication: ACUTE MYOCARDIAL INFARCTION
     Route: 048
     Dates: start: 20201223

REACTIONS (4)
  - Cardiac failure [Recovered/Resolved with Sequelae]
  - Bundle branch block right [Recovered/Resolved with Sequelae]
  - Acute myocardial infarction [Recovered/Resolved with Sequelae]
  - Atrial fibrillation [Recovered/Resolved with Sequelae]

NARRATIVE: CASE EVENT DATE: 20201222
